FAERS Safety Report 7928677-4 (Version None)
Quarter: 2011Q4

REPORT INFORMATION
  Report Type: 
  Country: None (occurrence: None)
  Receive Date: 20111118
  Receipt Date: 20111114
  Transmission Date: 20120403
  Serious: Yes (Other)
  Sender: FDA-Public Use
  Company Number: US-PFIZER INC-2011279399

PATIENT

DRUGS (2)
  1. DETROL [Suspect]
     Dosage: UNK
  2. DETROL LA [Suspect]

REACTIONS (1)
  - ABASIA [None]
